FAERS Safety Report 5161608-1 (Version None)
Quarter: 2006Q4

REPORT INFORMATION
  Report Type: 
  Country: None (occurrence: None)
  Receive Date: 20061121
  Receipt Date: 20061106
  Transmission Date: 20070319
  Serious: Yes (Other)
  Sender: FDA-Public Use
  Company Number: 2006122055

PATIENT
  Age: 74 Year
  Sex: Female
  Weight: 50 kg

DRUGS (7)
  1. LYRICA [Suspect]
     Indication: PAIN
     Dosage: 75 MG (75 MG, 1 IN 1 D), ORAL
     Route: 048
     Dates: start: 20060906, end: 20060906
  2. COAPROVEL (HYDROCHLOROTHIAZIDE, IRBESARTAN) [Suspect]
     Indication: HYPERTENSION
     Dosage: 300 MG (300 MG, 1 IN 1 D), ORAL
     Route: 048
  3. MYOLASTAN (TETRAZEPAM) [Suspect]
     Indication: FEELING OF RELAXATION
     Dosage: 1 TABLET (1 IN 1 D), ORAL
     Route: 048
  4. LAMALINE (BELLADONNA EXTRACT, CAFFEINE, OPIUM TINCTURE, PARACETAMOL) [Suspect]
     Indication: PAIN
     Dosage: 6 CAPSULES (1 D), ORAL
     Route: 048
  5. TRAMADOL HCL [Suspect]
     Indication: PAIN
     Dosage: 200 MG (200 MG, 1 IN 1 D), ORAL
     Route: 048
  6. AMITRIPTYLINE HCL [Suspect]
     Indication: PAIN
     Dosage: 35 DROPS (1 D), ORAL
     Route: 048
  7. ALL OTHER THERAPEUTIC PRODUCTS (ALL OTHER THERAPEUTIC PRODUCTS) [Concomitant]

REACTIONS (3)
  - FALL [None]
  - MALAISE [None]
  - SYNCOPE [None]
